FAERS Safety Report 20020361 (Version 3)
Quarter: 2021Q4

REPORT INFORMATION
  Report Type: Spontaneous
  Country: US (occurrence: US)
  Receive Date: 20211101
  Receipt Date: 20211217
  Transmission Date: 20220303
  Serious: Yes (Other)
  Sender: FDA-Public Use
  Company Number: US-FOUNDATIONCONSUMERHC-2021-US-022859

PATIENT
  Age: 19 Year
  Sex: Female
  Weight: 99.79 kg

DRUGS (4)
  1. TAKE ACTION [Suspect]
     Active Substance: LEVONORGESTREL
     Indication: Post coital contraception
     Dosage: 1.5 MG
     Route: 048
     Dates: start: 20211010, end: 20211010
  2. CONCERTA [Concomitant]
     Active Substance: METHYLPHENIDATE HYDROCHLORIDE
  3. TRAZODONE [Concomitant]
     Active Substance: TRAZODONE HYDROCHLORIDE
  4. Pro air inhaler [Concomitant]
     Dosage: AS NEEDED

REACTIONS (15)
  - Hypersensitivity [Unknown]
  - Anxiety [Recovered/Resolved]
  - Blood pressure increased [Recovered/Resolved]
  - Loss of consciousness [Recovered/Resolved]
  - Epistaxis [Not Recovered/Not Resolved]
  - Neck pain [Not Recovered/Not Resolved]
  - Breast swelling [Unknown]
  - Breast pain [Unknown]
  - Swelling [Not Recovered/Not Resolved]
  - Headache [Not Recovered/Not Resolved]
  - Movement disorder [Recovered/Resolved]
  - Tremor [Not Recovered/Not Resolved]
  - Vaginal haemorrhage [Recovered/Resolved]
  - Vaginal odour [Recovered/Resolved]
  - Nausea [Recovered/Resolved]

NARRATIVE: CASE EVENT DATE: 20211001
